FAERS Safety Report 10201758 (Version 2)
Quarter: 2014Q2

REPORT INFORMATION
  Report Type: Spontaneous
  Country: US (occurrence: US)
  Receive Date: 20140528
  Receipt Date: 20140528
  Transmission Date: 20141212
  Serious: No
  Sender: FDA-Public Use
  Company Number: US-BRISTOL-MYERS SQUIBB COMPANY-19079680

PATIENT
  Age: 82 Year
  Sex: Male

DRUGS (1)
  1. GLUCOPHAGE [Suspect]
     Dosage: TABS

REACTIONS (2)
  - Product odour abnormal [Unknown]
  - Blood glucose fluctuation [Unknown]
